FAERS Safety Report 23658986 (Version 1)
Quarter: 2024Q1

REPORT INFORMATION
  Report Type: Spontaneous
  Country: US (occurrence: None)
  Receive Date: 20240321
  Receipt Date: 20240321
  Transmission Date: 20240410
  Serious: Yes (Hospitalization)
  Sender: FDA-Public Use
  Company Number: None

PATIENT
  Sex: Female

DRUGS (11)
  1. COSENTYX [Suspect]
     Active Substance: SECUKINUMAB
     Dosage: FREQ: INJECT 300 MG (2 SYRINGES)UNDER THE SKIN (SUBCUTANEOUS INJECTION) EVERY 4 WEEKS, STARTING FROM
     Route: 058
     Dates: start: 20231128
  2. FLUCONAZOLE [Concomitant]
     Active Substance: FLUCONAZOLE
  3. LEVOTHYROXINE [Concomitant]
     Active Substance: LEVOTHYROXINE\LEVOTHYROXINE SODIUM
  4. LITHIUM CARBONATE [Concomitant]
     Active Substance: LITHIUM CARBONATE
  5. NADOLOL [Concomitant]
     Active Substance: NADOLOL
  6. NITROFURANTOIN [Concomitant]
     Active Substance: NITROFURANTOIN
  7. OTEZLA [Concomitant]
     Active Substance: APREMILAST
  8. POTASSIUM [Concomitant]
     Active Substance: POTASSIUM
  9. PRILOSEC OTC [Concomitant]
     Active Substance: OMEPRAZOLE MAGNESIUM
  10. RANITIDINE [Concomitant]
     Active Substance: RANITIDINE
  11. STELARA [Concomitant]
     Active Substance: USTEKINUMAB

REACTIONS (1)
  - Oedema [None]
